FAERS Safety Report 19359628 (Version 1)
Quarter: 2021Q2

REPORT INFORMATION
  Report Type: Spontaneous
  Country: US (occurrence: US)
  Receive Date: 20210602
  Receipt Date: 20210602
  Transmission Date: 20210717
  Serious: No
  Sender: FDA-Public Use
  Company Number: US-BRISTOL-MYERS SQUIBB COMPANY-BMS-2021-051714

PATIENT
  Age: 86 Year
  Sex: Female

DRUGS (11)
  1. ELIQUIS [Suspect]
     Active Substance: APIXABAN
     Indication: CEREBRAL THROMBOSIS
     Dosage: 2.5 MILLIGRAM, BID
     Route: 048
     Dates: start: 2018, end: 20210526
  2. VITAMIN C [Concomitant]
     Active Substance: ASCORBIC ACID
     Indication: PRODUCT USED FOR UNKNOWN INDICATION
  3. FOLIC ACID. [Concomitant]
     Active Substance: FOLIC ACID
     Indication: PRODUCT USED FOR UNKNOWN INDICATION
     Route: 065
  4. CALTRATE [Concomitant]
     Active Substance: CALCIUM CARBONATE
     Indication: PRODUCT USED FOR UNKNOWN INDICATION
     Dosage: 600/800
     Route: 065
  5. CRANBERRY [VACCINIUM SPP.] [Concomitant]
     Active Substance: CRANBERRY
     Indication: PRODUCT USED FOR UNKNOWN INDICATION
     Route: 065
  6. SENNA LEAVES [SENNA SPP.] [Concomitant]
     Indication: PRODUCT USED FOR UNKNOWN INDICATION
     Dosage: 8.6 MILLIGRAM
     Route: 065
  7. VITAMIN B1 [Concomitant]
     Active Substance: THIAMINE HYDROCHLORIDE
     Indication: PRODUCT USED FOR UNKNOWN INDICATION
     Dosage: 100 MILLIGRAM
     Route: 065
  8. PRAZOSIN. [Concomitant]
     Active Substance: PRAZOSIN
     Indication: PRODUCT USED FOR UNKNOWN INDICATION
     Dosage: 1 MILLIGRAM
     Route: 065
  9. ALENDRONATE SODIUM. [Concomitant]
     Active Substance: ALENDRONATE SODIUM
     Indication: PRODUCT USED FOR UNKNOWN INDICATION
     Dosage: 10 MILLIGRAM
     Route: 065
  10. QUETIAPINE. [Concomitant]
     Active Substance: QUETIAPINE
     Indication: PRODUCT USED FOR UNKNOWN INDICATION
     Dosage: 25 MILLIGRAM
     Route: 065
  11. ONE A DAY WOMEN^S 50+ HEALTHY ADVANTAGE [Concomitant]
     Active Substance: VITAMINS
     Indication: PRODUCT USED FOR UNKNOWN INDICATION
     Route: 065

REACTIONS (2)
  - Weight increased [Unknown]
  - Intentional product use issue [Unknown]

NARRATIVE: CASE EVENT DATE: 2018
